FAERS Safety Report 8927168 (Version 1)
Quarter: 2012Q4

REPORT INFORMATION
  Report Type: 
  Country: US (occurrence: US)
  Receive Date: 20121127
  Receipt Date: 20121127
  Transmission Date: 20130627
  Serious: No
  Sender: FDA-Public Use
  Company Number: US-TEVA-371141USA

PATIENT
  Sex: Female
  Weight: 81.72 kg

DRUGS (7)
  1. NUVIGIL [Suspect]
     Indication: SOMNOLENCE
     Dosage: 250 Milligram Daily;
     Route: 048
  2. BACLOFEN [Concomitant]
  3. DIOVAN [Concomitant]
  4. OMEPRAZOLE [Concomitant]
  5. INSULIN [Concomitant]
  6. VITAMIN D3 [Concomitant]
  7. VITAMINS [Concomitant]

REACTIONS (1)
  - Drug ineffective [Unknown]
